FAERS Safety Report 23545114 (Version 2)
Quarter: 2024Q1

REPORT INFORMATION
  Report Type: Spontaneous
  Country: US (occurrence: US)
  Receive Date: 20240220
  Receipt Date: 20240321
  Transmission Date: 20240410
  Serious: No
  Sender: FDA-Public Use
  Company Number: US-PFIZER INC-202400042971

PATIENT
  Age: 20 Year
  Sex: Female

DRUGS (1)
  1. RUXIENCE [Suspect]
     Active Substance: RITUXIMAB-PVVR
     Dosage: RITUXIMAB 1,000 IV (INTRAVENOUS) 1 AND DAY 15. REPEAT EVERY 16 WEEKS
     Route: 042

REACTIONS (1)
  - Morphoea [Unknown]
